FAERS Safety Report 12656617 (Version 1)
Quarter: 2016Q3

REPORT INFORMATION
  Report Type: Spontaneous
  Country: US (occurrence: US)
  Receive Date: 20160816
  Receipt Date: 20160816
  Transmission Date: 20161109
  Serious: Yes (Death, Other)
  Sender: FDA-Public Use
  Company Number: US-PFIZER INC-2016341643

PATIENT
  Age: 88 Year
  Sex: Female

DRUGS (11)
  1. LIDOCAINE HCL [Suspect]
     Active Substance: LIDOCAINE HYDROCHLORIDE
     Dosage: 25 MG, UNK (OVER A PERIOD OF 90 SECONDS)
     Route: 042
  2. ATROPINE SULFATE. [Concomitant]
     Active Substance: ATROPINE SULFATE
     Indication: BRADYCARDIA
     Dosage: 1.2 MG, UNK
     Route: 042
  3. ATROPINE SULFATE. [Concomitant]
     Active Substance: ATROPINE SULFATE
     Dosage: 2 MG, UNK
     Route: 042
  4. ISOPROTERENOL HYDROCHLORIDE [Concomitant]
     Active Substance: ISOPROTERENOL HYDROCHLORIDE
     Dosage: UNK
  5. SODIUM BICARBONATE. [Concomitant]
     Active Substance: SODIUM BICARBONATE
     Dosage: UNK
  6. FUROSEMIDE. [Concomitant]
     Active Substance: FUROSEMIDE
     Indication: ACUTE PULMONARY OEDEMA
     Dosage: UNK
     Route: 042
  7. LIDOCAINE HCL [Suspect]
     Active Substance: LIDOCAINE HYDROCHLORIDE
     Dosage: 100 MG, UNK (TOOK 90 SECONDS)
     Route: 042
  8. MEPERIDINE [Concomitant]
     Active Substance: MEPERIDINE
     Indication: ACUTE PULMONARY OEDEMA
     Dosage: UNK
     Route: 030
  9. CALCIUM GLUCONATE. [Concomitant]
     Active Substance: CALCIUM GLUCONATE
     Dosage: UNK
  10. LIDOCAINE HCL [Suspect]
     Active Substance: LIDOCAINE HYDROCHLORIDE
     Indication: VENTRICULAR ARRHYTHMIA
     Dosage: 75 MG, UNK
     Route: 042
  11. METARAMINOL [Concomitant]
     Active Substance: METARAMINOL
     Dosage: UNK

REACTIONS (1)
  - Cardiac arrest [Fatal]
